FAERS Safety Report 5933480-0 (Version None)
Quarter: 2008Q4

REPORT INFORMATION
  Report Type: 
  Country: None (occurrence: None)
  Receive Date: 20081024
  Receipt Date: 20081013
  Transmission Date: 20090506
  Serious: Yes (Other)
  Sender: FDA-Public Use
  Company Number: 231103J08USA

PATIENT
  Age: 44 Year
  Sex: Female

DRUGS (5)
  1. REBIF [Suspect]
     Indication: MULTIPLE SCLEROSIS
     Dosage: 44 MCG, 3 IN 1 WEEKS, SUBCUTANEOUS
     Route: 058
     Dates: start: 20050101, end: 20060101
  2. REBIF [Suspect]
     Indication: MULTIPLE SCLEROSIS
     Dosage: 44 MCG, 3 IN 1 WEEKS, SUBCUTANEOUS
     Route: 058
     Dates: start: 20070101
  3. TYLENOL(COTYLENOL) [Concomitant]
  4. LEXAPRO [Concomitant]
  5. BIRTH CONTROL PILLS(ORAL CONTRACEPTIVE NOS) [Concomitant]

REACTIONS (3)
  - GRANULOMA [None]
  - MENINGIOMA [None]
  - SKIN NODULE [None]
